FAERS Safety Report 20340992 (Version 2)
Quarter: 2022Q1

REPORT INFORMATION
  Report Type: Report from Study
  Country: FR (occurrence: FR)
  Receive Date: 20220117
  Receipt Date: 20220311
  Transmission Date: 20220423
  Serious: Yes (Hospitalization)
  Sender: FDA-Public Use
  Company Number: FR-PFIZER INC-202200010870

PATIENT
  Age: 26 Year
  Sex: Female

DRUGS (1)
  1. PREGABALIN [Suspect]
     Active Substance: PREGABALIN
     Indication: Drug withdrawal syndrome
     Dosage: 12600 MG, DAILY

REACTIONS (9)
  - No adverse event [Unknown]
  - No adverse event [Unknown]
  - No adverse event [Unknown]
  - No adverse event [Unknown]
  - No adverse event [Unknown]
  - No adverse event [Unknown]
  - No adverse event [Unknown]
  - No adverse event [Unknown]
  - No adverse event [Unknown]

NARRATIVE: CASE EVENT DATE: 20190101
